FAERS Safety Report 5976082-2 (Version None)
Quarter: 2008Q4

REPORT INFORMATION
  Report Type: 
  Country: None (occurrence: None)
  Receive Date: 20081124
  Receipt Date: 20080723
  Transmission Date: 20090506
  Serious: Yes (Other)
  Sender: FDA-Public Use
  Company Number: 50735

PATIENT
  Sex: Female

DRUGS (1)
  1. AMIODARONE HCL [Suspect]

REACTIONS (1)
  - INJECTION SITE REACTION [None]
